FAERS Safety Report 13588569 (Version 1)
Quarter: 2017Q2

REPORT INFORMATION
  Report Type: Spontaneous
  Country: IT (occurrence: IT)
  Receive Date: 20170529
  Receipt Date: 20170529
  Transmission Date: 20170830
  Serious: Yes (Other)
  Sender: FDA-Public Use
  Company Number: IT-ORION CORPORATION ORION PHARMA-ENTC2017-0232

PATIENT
  Age: 79 Year
  Sex: Male

DRUGS (1)
  1. CORBILTA [Suspect]
     Active Substance: CARBIDOPA\ENTACAPONE\LEVODOPA
     Dosage: STRENGTH: 200/50/200 MG
     Route: 065

REACTIONS (3)
  - Therapeutic response decreased [Not Recovered/Not Resolved]
  - Product substitution issue [Unknown]
  - Extrapyramidal disorder [Not Recovered/Not Resolved]

NARRATIVE: CASE EVENT DATE: 20161101
